FAERS Safety Report 17229509 (Version 1)
Quarter: 2020Q1

REPORT INFORMATION
  Report Type: Spontaneous
  Country: US (occurrence: US)
  Receive Date: 20200103
  Receipt Date: 20200103
  Transmission Date: 20200409
  Serious: No
  Sender: FDA-Public Use
  Company Number: US-JNJFOC-20191241381

PATIENT
  Age: 71 Year
  Sex: Male
  Weight: 94.43 kg

DRUGS (2)
  1. DURAGESIC [Suspect]
     Active Substance: FENTANYL
     Indication: BACK PAIN
     Route: 062
     Dates: start: 2013, end: 2015
  2. DURAGESIC [Suspect]
     Active Substance: FENTANYL
     Route: 062
     Dates: start: 20191216

REACTIONS (3)
  - Pain [Unknown]
  - Drug ineffective [Unknown]
  - Expired product administered [Unknown]

NARRATIVE: CASE EVENT DATE: 201903
